FAERS Safety Report 6643820-5 (Version None)
Quarter: 2010Q1

REPORT INFORMATION
  Report Type: 
  Country: None (occurrence: None)
  Receive Date: 20100322
  Receipt Date: 20100317
  Transmission Date: 20100710
  Serious: Yes (Death)
  Sender: FDA-Public Use
  Company Number: KR-JNJFOC-20100103583

PATIENT
  Age: 71 Year
  Sex: Female

DRUGS (15)
  1. DURAGESIC-100 [Suspect]
     Indication: CANCER PAIN
     Route: 062
  2. DURAGESIC-100 [Suspect]
     Route: 062
  3. DURAGESIC-100 [Suspect]
     Route: 062
  4. DURAGESIC-100 [Suspect]
     Route: 062
  5. DURAGESIC-100 [Suspect]
     Route: 062
  6. DURAGESIC-100 [Suspect]
     Route: 062
  7. DURAGESIC-100 [Suspect]
     Route: 062
  8. DURAGESIC-100 [Suspect]
     Route: 062
  9. ANTIDEPRESSANT, UNSPECIFIED [Concomitant]
     Indication: DEPRESSION
  10. ANALGESICS UNSPECIFIED [Concomitant]
  11. GASTROINTESTINAL AGENT [Concomitant]
     Route: 048
  12. UNKNOWN MEDICATION [Concomitant]
     Route: 048
  13. OXYCONTIN [Concomitant]
     Indication: CANCER PAIN
     Route: 048
  14. IRCODON [Concomitant]
     Indication: CANCER PAIN
     Route: 048
  15. VITAMIN TAB [Concomitant]
     Route: 048

REACTIONS (5)
  - CHEST DISCOMFORT [None]
  - CONFUSIONAL STATE [None]
  - DEATH [None]
  - GAIT DISTURBANCE [None]
  - HYPERHIDROSIS [None]
